FAERS Safety Report 20350385 (Version 1)
Quarter: 2022Q1

REPORT INFORMATION
  Report Type: Spontaneous
  Country: SK (occurrence: SK)
  Receive Date: 20220119
  Receipt Date: 20220119
  Transmission Date: 20220423
  Serious: Yes (Hospitalization)
  Sender: FDA-Public Use
  Company Number: None

PATIENT
  Age: 54 Year
  Sex: Female

DRUGS (1)
  1. GABAPENTIN [Suspect]
     Active Substance: GABAPENTIN
     Indication: Lumbosacral radiculopathy
     Dosage: 900 MILLIGRAM DAILY; 1-1-1, SUBTANCE NAME : GABAPENTIN ,
     Route: 048
     Dates: start: 20201202, end: 20210610

REACTIONS (9)
  - Dyspepsia [Recovering/Resolving]
  - Blood pressure increased [Recovering/Resolving]
  - Contusion [Recovering/Resolving]
  - Gait disturbance [Recovering/Resolving]
  - Increased appetite [Recovering/Resolving]
  - Dyspnoea [Recovering/Resolving]
  - Oedema [Recovering/Resolving]
  - Urinary retention [Recovering/Resolving]
  - Urticaria [Recovering/Resolving]

NARRATIVE: CASE EVENT DATE: 20201201
